FAERS Safety Report 22180529 (Version 1)
Quarter: 2023Q2

REPORT INFORMATION
  Report Type: Spontaneous
  Country: US (occurrence: None)
  Receive Date: 20230405
  Receipt Date: 20230405
  Transmission Date: 20230722
  Serious: No
  Sender: FDA-Public Use
  Company Number: None

PATIENT
  Age: 81 Year
  Sex: Female
  Weight: 79.02 kg

DRUGS (23)
  1. CAPECITABINE [Suspect]
     Active Substance: CAPECITABINE
     Indication: Colon cancer
     Dosage: 300MG TWICE DAILY ORAL?
     Route: 048
     Dates: start: 202210
  2. CAPECITABINE [Suspect]
     Active Substance: CAPECITABINE
     Indication: Colon cancer
     Dosage: 1500MG TWICE DAILY ORAL?
     Route: 048
     Dates: start: 202210
  3. ALPRAZOLAM [Concomitant]
  4. ANUSOL-HC RECTAL [Concomitant]
  5. CIPROFLOXACIN [Concomitant]
  6. CYANOCOBALAMIN [Concomitant]
  7. ERYTHROMYCIN [Concomitant]
  8. EZETIMIBE [Concomitant]
     Active Substance: EZETIMIBE
  9. HYDROCHLOROTHIZDE [Concomitant]
  10. NORCO [Concomitant]
     Active Substance: ACETAMINOPHEN\HYDROCODONE BITARTRATE
  11. LEVOTHYROXINE [Concomitant]
  12. LOSARTAN [Concomitant]
  13. METOPROLOL [Concomitant]
  14. NALOXONE [Concomitant]
  15. NEOMYCIN [Concomitant]
  16. OXYCODONE [Concomitant]
  17. PANTOPRAZOLE SODIUM [Concomitant]
     Active Substance: PANTOPRAZOLE SODIUM
  18. POTASSIUM CHLORIDE [Concomitant]
     Active Substance: POTASSIUM CHLORIDE
  19. SERTRALINE [Concomitant]
     Active Substance: SERTRALINE HYDROCHLORIDE
  20. TAMSULOSIN [Concomitant]
     Active Substance: TAMSULOSIN
  21. TEMAZEPAM [Concomitant]
     Active Substance: TEMAZEPAM
  22. TRAMADOL [Concomitant]
  23. VITAMIN D2 [Concomitant]
     Active Substance: ERGOCALCIFEROL

REACTIONS (1)
  - COVID-19 [None]
